FAERS Safety Report 6613762-X (Version None)
Quarter: 2010Q1

REPORT INFORMATION
  Report Type: 
  Country: None (occurrence: None)
  Receive Date: 20100304
  Receipt Date: 20100223
  Transmission Date: 20100710
  Serious: Yes (Other)
  Sender: FDA-Public Use
  Company Number: US-BAXTER-2010BH003139

PATIENT
  Sex: Male

DRUGS (4)
  1. DIANEAL [Suspect]
     Indication: PERITONEAL DIALYSIS
     Route: 033
     Dates: end: 20100201
  2. DIANEAL [Suspect]
     Route: 033
     Dates: start: 20100201
  3. DIANEAL [Suspect]
     Indication: PERITONEAL DIALYSIS
     Route: 033
     Dates: end: 20100201
  4. DIANEAL [Suspect]
     Route: 033
     Dates: start: 20100201

REACTIONS (3)
  - ABDOMINAL DISTENSION [None]
  - HICCUPS [None]
  - LOWER LIMB FRACTURE [None]
